FAERS Safety Report 16424326 (Version 1)
Quarter: 2019Q2

REPORT INFORMATION
  Report Type: Spontaneous
  Country: US (occurrence: US)
  Receive Date: 20190613
  Receipt Date: 20190613
  Transmission Date: 20190711
  Serious: No
  Sender: FDA-Public Use
  Company Number: US-AUROBINDO-AUR-APU-2018-030934

PATIENT

DRUGS (1)
  1. OLANZAPINE TABLETS 2.5MG [Suspect]
     Active Substance: OLANZAPINE
     Indication: CLUSTER HEADACHE
     Dosage: UNK
     Route: 065

REACTIONS (1)
  - Off label use [Unknown]
